FAERS Safety Report 23696317 (Version 1)
Quarter: 2024Q2

REPORT INFORMATION
  Report Type: Spontaneous
  Country: CN (occurrence: US)
  Receive Date: 20240402
  Receipt Date: 20240402
  Transmission Date: 20240716
  Serious: Yes (Other)
  Sender: FDA-Public Use
  Company Number: CN-AMGEN-USASP2024060511

PATIENT
  Age: 49 Year
  Sex: Male

DRUGS (6)
  1. TRASTUZUMAB [Suspect]
     Active Substance: TRASTUZUMAB
     Indication: Adenocarcinoma gastric
     Dosage: UNK (EIGHT CYCLES)
     Route: 065
     Dates: start: 201804
  2. TRASTUZUMAB [Suspect]
     Active Substance: TRASTUZUMAB
     Dosage: UNK (1 CYCLE)
     Route: 065
     Dates: start: 201910
  3. TRASTUZUMAB [Suspect]
     Active Substance: TRASTUZUMAB
     Dosage: UNK (3 CYCLES)
     Route: 065
     Dates: start: 202005
  4. FLUOROURACIL\LEUCOVORIN CALCIUM\OXALIPLATIN [Concomitant]
     Active Substance: FLUOROURACIL\LEUCOVORIN CALCIUM\OXALIPLATIN
     Indication: Adenocarcinoma gastric
     Dosage: UNK (EIGHT CYCLES)
     Route: 065
     Dates: start: 201804
  5. FLUOROURACIL\LEUCOVORIN CALCIUM\OXALIPLATIN [Concomitant]
     Active Substance: FLUOROURACIL\LEUCOVORIN CALCIUM\OXALIPLATIN
     Dosage: UNK (ONE CYCLE)
     Route: 065
     Dates: start: 201910
  6. NIVOLUMAB [Concomitant]
     Active Substance: NIVOLUMAB
     Indication: Adenocarcinoma gastric
     Dosage: UNK (3 CYCLES)
     Route: 065
     Dates: start: 202005

REACTIONS (10)
  - Adenocarcinoma gastric [Unknown]
  - Hepatotoxicity [Recovered/Resolved]
  - Myelosuppression [Recovering/Resolving]
  - Gastrointestinal ulcer haemorrhage [Recovered/Resolved]
  - Interstitial lung disease [Unknown]
  - Anaemia [Recovered/Resolved]
  - Vomiting [Recovered/Resolved]
  - Therapy partial responder [Unknown]
  - Diarrhoea [Recovered/Resolved]
  - Nausea [Recovered/Resolved]

NARRATIVE: CASE EVENT DATE: 20191001
